FAERS Safety Report 7369396-5 (Version None)
Quarter: 2011Q1

REPORT INFORMATION
  Report Type: 
  Country: None (occurrence: None)
  Receive Date: 20110323
  Receipt Date: 20110317
  Transmission Date: 20110831
  Serious: Yes (Death)
  Sender: FDA-Public Use
  Company Number: US-ROCHE-766698

PATIENT
  Age: 49 Year
  Sex: Female

DRUGS (7)
  1. CLONAZEPAM [Suspect]
     Dosage: ONGOING STATUS UNKNOWN AT THE TIME OF DEATH
     Route: 048
  2. BUPRENORPHINE [Suspect]
     Dosage: ONGOING STATUS UNKNOWN AT THE TIME OF DEATH
     Route: 048
  3. TIZANIDINE [Suspect]
     Dosage: ONGOING STATUS UNKNOWN AT THE TIME OF DEATH
     Route: 048
  4. AMITRIPTYLINE (NON-ROCHE/NON-COMPARATOR) [Suspect]
     Dosage: ONGOING STATUS UNKNOWN AT THE TIME OF DEATH
     Route: 048
  5. TRAZODONE [Suspect]
     Dosage: ONGOING STATUS UNKNOWN AT THE TIME OF DEATH
     Route: 048
  6. WARFARIN SODIUM [Suspect]
     Dosage: ONGOING STATUS UNKNOWN AT THE TIME OF DEATH
     Route: 048
  7. NALOXONE [Suspect]
     Dosage: ONGOING STATUS UNKNOWN AT THE TIME OF DEATH
     Route: 048

REACTIONS (1)
  - TOXICITY TO VARIOUS AGENTS [None]
